FAERS Safety Report 14920201 (Version 1)
Quarter: 2018Q2

REPORT INFORMATION
  Report Type: Report from Study
  Country: US (occurrence: US)
  Receive Date: 20180521
  Receipt Date: 20180521
  Transmission Date: 20180711
  Serious: Yes (Other)
  Sender: FDA-Public Use
  Company Number: US-ASTRAZENECA-2018SE66455

PATIENT
  Age: 71 Year
  Sex: Female
  Weight: 65.3 kg

DRUGS (21)
  1. FULVESTRANT. [Suspect]
     Active Substance: FULVESTRANT
     Indication: BREAST CANCER METASTATIC
     Dosage: 500 MG, CYCLICAL
     Route: 030
     Dates: start: 20150206
  2. CALCIUM [Concomitant]
     Active Substance: CALCIUM
     Dates: start: 20140618
  3. ASPIRIN. [Concomitant]
     Active Substance: ASPIRIN
  4. IBUPROFEN. [Concomitant]
     Active Substance: IBUPROFEN
     Dates: start: 20170306
  5. ROBITUSSIN (GUAIFENESIN) [Concomitant]
     Active Substance: GUAIFENESIN
     Dates: start: 20160830
  6. SIMETHICON [Concomitant]
     Active Substance: DIMETHICONE
     Dates: start: 20170824
  7. BLINDED ABEMACICLIB [Suspect]
     Active Substance: ABEMACICLIB
     Indication: BREAST CANCER METASTATIC
     Dosage: EVERY 12 HOURS ON DAYS ONE TO 28
     Route: 048
     Dates: start: 20150206
  8. BIOTIN [Concomitant]
     Active Substance: BIOTIN
     Dates: start: 20150206
  9. VITAMIN D3 [Concomitant]
     Active Substance: CHOLECALCIFEROL
     Dates: start: 20140618
  10. XGEVA [Concomitant]
     Active Substance: DENOSUMAB
     Dates: start: 20150309
  11. XYZAL [Concomitant]
     Active Substance: LEVOCETIRIZINE DIHYDROCHLORIDE
     Dates: start: 20160708
  12. MIRALAX [Concomitant]
     Active Substance: POLYETHYLENE GLYCOL 3350
     Dates: start: 20171018
  13. CLARITIN [Concomitant]
     Active Substance: LORATADINE
     Dates: start: 20160627
  14. AZELASTINE. [Concomitant]
     Active Substance: AZELASTINE HYDROCHLORIDE
     Dates: start: 20160708
  15. IMODIUM [Concomitant]
     Active Substance: LOPERAMIDE HYDROCHLORIDE
     Dates: start: 20150223
  16. ZOFRAN [Concomitant]
     Active Substance: ONDANSETRON HYDROCHLORIDE
  17. SENOKOT [Concomitant]
     Active Substance: SENNOSIDES
     Dates: start: 20160601
  18. LACTULOSE. [Concomitant]
     Active Substance: LACTULOSE
     Dates: start: 20170308
  19. BLINDED PLACEBO [Suspect]
     Active Substance: INVESTIGATIONAL PRODUCT
     Indication: BREAST CANCER METASTATIC
     Dosage: TWO TIMES A DAY
     Route: 048
     Dates: start: 20150206
  20. COLACE [Concomitant]
     Active Substance: DOCUSATE SODIUM
     Dates: start: 20160309
  21. ALLEGRA [Concomitant]
     Active Substance: FEXOFENADINE HYDROCHLORIDE
     Dates: start: 20160601

REACTIONS (1)
  - Embolism [Unknown]

NARRATIVE: CASE EVENT DATE: 20180510
